FAERS Safety Report 10242364 (Version 1)
Quarter: 2014Q2

REPORT INFORMATION
  Report Type: Spontaneous
  Country: US (occurrence: US)
  Receive Date: 20140617
  Receipt Date: 20140617
  Transmission Date: 20141212
  Serious: No
  Sender: FDA-Public Use
  Company Number: US-GILEAD-2014-0105497

PATIENT
  Age: 67 Year
  Sex: Female

DRUGS (15)
  1. LETAIRIS [Suspect]
     Indication: PULMONARY HYPERTENSION
     Route: 065
     Dates: start: 20140523, end: 20140609
  2. ADCIRCA [Concomitant]
  3. VIGAMOX [Concomitant]
  4. PREDNISONE [Concomitant]
  5. VIVELLE                            /00918101/ [Concomitant]
  6. ZYRTEC [Concomitant]
  7. TRILIPIX [Concomitant]
  8. CRESTOR [Concomitant]
  9. LOSARTAN [Concomitant]
  10. COZAAR [Concomitant]
  11. CARVEDILOL [Concomitant]
  12. METFORMIN [Concomitant]
  13. SYNTHROID [Concomitant]
  14. NOVOLIN [Concomitant]
  15. STELARA [Concomitant]

REACTIONS (4)
  - Heart rate increased [Unknown]
  - Pain [Unknown]
  - Dyspnoea [Unknown]
  - Oedema peripheral [Unknown]
